FAERS Safety Report 8506717-1 (Version None)
Quarter: 2012Q3

REPORT INFORMATION
  Report Type: 
  Country: None (occurrence: None)
  Receive Date: 20120712
  Receipt Date: 20120706
  Transmission Date: 20120928
  Serious: Yes (Hospitalization)
  Sender: FDA-Public Use
  Company Number: DE-B.I. PHARMACEUTICALS,INC./RIDGEFIELD-2012-EU-03466GD

PATIENT
  Age: 17 Year
  Sex: Male

DRUGS (3)
  1. HALOPERIDOL [Suspect]
     Indication: AGITATION
  2. LEVOMEPROMAZIN [Suspect]
     Indication: AGITATION
  3. CLONIDINE [Suspect]
     Indication: AGITATION

REACTIONS (1)
  - DYSKINESIA [None]
